FAERS Safety Report 10932639 (Version 1)
Quarter: 2015Q1

REPORT INFORMATION
  Report Type: Spontaneous
  Country: US (occurrence: None)
  Receive Date: 20150319
  Receipt Date: 20150319
  Transmission Date: 20150721
  Serious: Yes (Life-Threatening, Disabling, Other)
  Sender: FDA-Public Use
  Company Number: None

PATIENT
  Age: 70 Year
  Sex: Female
  Weight: 68.04 kg

DRUGS (22)
  1. GRAPE SEED EXTRACT [Concomitant]
     Active Substance: GRAPE SEED EXTRACT
  2. L DOPA [Concomitant]
     Active Substance: LEVODOPA
  3. METHYLPHEN [Suspect]
     Active Substance: BENZOIC ACID\HYOSCYAMINE SULFATE\METHENAMINE\METHYLENE BLUE\PHENYL SALICYLATE
     Indication: NARCOLEPSY
     Dosage: 1 PILL ONCE DAILY TAKEN BY MOUTH
     Route: 048
  4. OXYBUTINYN [Concomitant]
  5. VITAMIN D [Concomitant]
     Active Substance: CHOLECALCIFEROL
  6. RESVERATROL [Concomitant]
     Active Substance: RESVERATROL
  7. VITAMIN B COMPLEX [Concomitant]
     Active Substance: CYANOCOBALAMIN\DEXPANTHENOL\NIACINAMIDE\PYRIDOXINE HYDROCHLORIDE\RIBOFLAVIN 5^-PHOSPHATE SODIUM\THIAMINE HYDROCHLORIDE\VITAMIN B COMPLEX
  8. VOLTAREN [Concomitant]
     Active Substance: DICLOFENAC SODIUM
  9. FISH OIL [Concomitant]
     Active Substance: FISH OIL
  10. ZYRTEC [Concomitant]
     Active Substance: CETIRIZINE HYDROCHLORIDE
  11. METHYLPHEN [Suspect]
     Active Substance: BENZOIC ACID\HYOSCYAMINE SULFATE\METHENAMINE\METHYLENE BLUE\PHENYL SALICYLATE
     Indication: ATTENTION DEFICIT/HYPERACTIVITY DISORDER
     Dosage: 1 PILL ONCE DAILY TAKEN BY MOUTH
     Route: 048
  12. K-DUR [Concomitant]
     Active Substance: POTASSIUM CHLORIDE
  13. COQ10 [Concomitant]
     Active Substance: UBIDECARENONE
  14. MELATONIN [Concomitant]
     Active Substance: MELATONIN
  15. LEVTHYROXINE [Concomitant]
     Active Substance: LEVOTHYROXINE
  16. MELOXICAM. [Concomitant]
     Active Substance: MELOXICAM
  17. METHYLPHENIDATE [Concomitant]
     Active Substance: METHYLPHENIDATE
  18. ASPIRIN. [Concomitant]
     Active Substance: ASPIRIN
  19. MULTI-VITAMIN [Concomitant]
     Active Substance: .ALPHA.-TOCOPHEROL ACETATE, DL-\ASCORBIC ACID\CYANOCOBALAMIN\FLUORIDE ION\FOLIC ACID\NIACIN\PYRIDOXINE\RIBOFLAVIN\THIAMINE\VITAMIN A\VITAMIN D
  20. LASIX [Concomitant]
     Active Substance: FUROSEMIDE
  21. METHYPHEN [Concomitant]
  22. DICLOFENAC [Concomitant]
     Active Substance: DICLOFENAC

REACTIONS (6)
  - Loss of consciousness [None]
  - Narcolepsy [None]
  - Fall [None]
  - Fatigue [None]
  - Injury [None]
  - Product substitution issue [None]

NARRATIVE: CASE EVENT DATE: 20150317
